FAERS Safety Report 15366215 (Version 1)
Quarter: 2018Q3

REPORT INFORMATION
  Report Type: Spontaneous
  Country: IE (occurrence: IE)
  Receive Date: 20180910
  Receipt Date: 20180910
  Transmission Date: 20181010
  Serious: Yes (Death)
  Sender: FDA-Public Use
  Company Number: IE-CELGENEUS-IRL-20180900841

PATIENT
  Sex: Male

DRUGS (3)
  1. PREDNISOLONE. [Concomitant]
     Active Substance: PREDNISOLONE
     Indication: DISEASE PROGRESSION
     Dosage: 100 MILLIGRAM
     Route: 065
     Dates: start: 20160903
  2. REVLIMID [Suspect]
     Active Substance: LENALIDOMIDE
     Indication: B-CELL LYMPHOMA
     Route: 048
     Dates: start: 201609
  3. IDELALISIB [Concomitant]
     Active Substance: IDELALISIB
     Indication: B-CELL LYMPHOMA
     Route: 065
     Dates: start: 2016, end: 201608

REACTIONS (1)
  - B-cell lymphoma [Fatal]
